FAERS Safety Report 8269050-1 (Version None)
Quarter: 2012Q1

REPORT INFORMATION
  Report Type: 
  Country: None (occurrence: None)
  Receive Date: 20120327
  Receipt Date: 20091021
  Transmission Date: 20120608
  Serious: Yes (Other)
  Sender: FDA-Public Use
  Company Number: PHEH2009US13131

PATIENT
  Age: 43 Year
  Sex: Female
  Weight: 65.8 kg

DRUGS (2)
  1. LISINOPRIL [Concomitant]
  2. GLEEVEC [Suspect]
     Indication: CHRONIC GRAFT VERSUS HOST DISEASE
     Dosage: 100 MG DAILY, ORAL
     Route: 048
     Dates: start: 20090828

REACTIONS (1)
  - HERPES ZOSTER [None]
